FAERS Safety Report 10384904 (Version 1)
Quarter: 2014Q1

REPORT INFORMATION
  Report Type: Spontaneous
  Country: US (occurrence: None)
  Receive Date: 20140306
  Receipt Date: 20140306
  Transmission Date: 20141002
  Serious: Yes (Other)
  Sender: FDA-Public Use
  Company Number: 163-21880-13042853

PATIENT
  Age: 81 Year
  Sex: Female

DRUGS (1)
  1. REVLIMID (LENALIDOMIDE) (CAPSULES) [Suspect]
     Indication: MYELODYSPLASTIC SYNDROME
     Route: 048
     Dates: start: 201005

REACTIONS (6)
  - Haemoglobin decreased [None]
  - Platelet count increased [None]
  - Weight decreased [None]
  - Muscle spasms [None]
  - Diarrhoea [None]
  - Petechiae [None]
